FAERS Safety Report 5311410-2 (Version None)
Quarter: 2007Q2

REPORT INFORMATION
  Report Type: 
  Country: None (occurrence: None)
  Receive Date: 20070430
  Receipt Date: 20070418
  Transmission Date: 20071010
  Serious: Yes (Other)
  Sender: FDA-Public Use
  Company Number: PHBS2007ZA06280

PATIENT
  Age: 79 Year
  Sex: Female

DRUGS (4)
  1. ENABLEX [Suspect]
     Indication: URGE INCONTINENCE
     Dosage: 3.75 MG/DAY
     Route: 065
  2. ENABLEX [Suspect]
     Dosage: 3.75 MG/DAY
     Route: 065
  3. ENABLEX [Suspect]
     Dosage: 7.5 MG/DAY
     Route: 065
     Dates: start: 20070403
  4. PHARMAPRESS [Suspect]

REACTIONS (3)
  - DIZZINESS [None]
  - HEADACHE [None]
  - HYPOTENSION [None]
